FAERS Safety Report 23286598 (Version 1)
Quarter: 2023Q4

REPORT INFORMATION
  Report Type: Report from Study
  Country: US (occurrence: US)
  Receive Date: 20231212
  Receipt Date: 20231212
  Transmission Date: 20240109
  Serious: No
  Sender: FDA-Public Use
  Company Number: US-ALXN-A202305103

PATIENT
  Sex: Female

DRUGS (1)
  1. ULTOMIRIS [Suspect]
     Active Substance: RAVULIZUMAB-CWVZ
     Indication: Myasthenia gravis
     Dosage: UNK
     Route: 065
     Dates: start: 20221108

REACTIONS (14)
  - Sinusitis [Unknown]
  - Cystitis [Unknown]
  - Hypoaesthesia oral [Unknown]
  - Hypertonic bladder [Unknown]
  - Vulvovaginal discomfort [Unknown]
  - Dysgeusia [Unknown]
  - Constipation [Unknown]
  - Dyspnoea [Unknown]
  - Pain [Unknown]
  - Abnormal dreams [Unknown]
  - Pruritus [Unknown]
  - Rash [Unknown]
  - Hypersensitivity [Unknown]
  - Fatigue [Unknown]
